FAERS Safety Report 6434602-8 (Version None)
Quarter: 2009Q4

REPORT INFORMATION
  Report Type: 
  Country: None (occurrence: None)
  Receive Date: 20091110
  Receipt Date: 20091103
  Transmission Date: 20100525
  Serious: Yes (Hospitalization)
  Sender: FDA-Public Use
  Company Number: A0815881A

PATIENT
  Age: 55 Year
  Sex: Female

DRUGS (1)
  1. AVANDIA [Suspect]
     Dosage: 4MG PER DAY
     Route: 065
     Dates: start: 20030920, end: 20041201

REACTIONS (4)
  - ANGINA UNSTABLE [None]
  - ARRHYTHMIA [None]
  - MYOCARDIAL INFARCTION [None]
  - SWELLING [None]
